FAERS Safety Report 26084319 (Version 1)
Quarter: 2025Q4

REPORT INFORMATION
  Report Type: Spontaneous
  Country: US (occurrence: None)
  Receive Date: 20251124
  Receipt Date: 20251124
  Transmission Date: 20260117
  Serious: No
  Sender: AMERICAN REGENT
  Company Number: US-AMERICAN REGENT INC-2024004569

PATIENT
  Sex: Female

DRUGS (3)
  1. VENOFER [Suspect]
     Active Substance: IRON SUCROSE
     Indication: Product used for unknown indication
     Dosage: 100 MILLIGRAM (PATIENT RECEIVED INFUSION EVERY 2-3 WEEKS)
  2. VENOFER [Suspect]
     Active Substance: IRON SUCROSE
     Dosage: 200 MILLIGRAM (PATIENT RECEIVED INFUSION EVERY 2-3 WEEKS)
  3. VENOFER [Suspect]
     Active Substance: IRON SUCROSE
     Dosage: 200 MILLIGRAM (PATIENT RECEIVED INFUSION EVERY 2-3 WEEKS)

REACTIONS (5)
  - Dyspepsia [Unknown]
  - Nausea [Unknown]
  - Diarrhoea [Unknown]
  - Recalled product administered [Unknown]
  - Off label use [Unknown]
